FAERS Safety Report 18378962 (Version 2)
Quarter: 2022Q1

REPORT INFORMATION
  Report Type: Spontaneous
  Country: US (occurrence: US)
  Receive Date: 20201014
  Receipt Date: 20220322
  Transmission Date: 20220424
  Serious: Yes (Other)
  Sender: FDA-Public Use
  Company Number: US-SAARTEMIS-SAC202010080453

PATIENT
  Age: 53 Year
  Sex: Female

DRUGS (1)
  1. ZANTAC [Suspect]
     Active Substance: RANITIDINE HYDROCHLORIDE
     Indication: Dyspepsia
     Dosage: 150 MG, QD
     Route: 065
     Dates: start: 200701, end: 201001

REACTIONS (2)
  - Pancreatic carcinoma [Unknown]
  - Thyroid cancer [Unknown]

NARRATIVE: CASE EVENT DATE: 20091118
